FAERS Safety Report 20754359 (Version 1)
Quarter: 2022Q2

REPORT INFORMATION
  Report Type: Spontaneous
  Country: US (occurrence: None)
  Receive Date: 20220426
  Receipt Date: 20220426
  Transmission Date: 20220721
  Serious: No
  Sender: FDA-Public Use
  Company Number: US-ROCHE-2874304

PATIENT
  Sex: Male
  Weight: 48.578 kg

DRUGS (13)
  1. ESBRIET [Suspect]
     Active Substance: PIRFENIDONE
     Indication: Idiopathic pulmonary fibrosis
     Dosage: DOSE WAS INCREASED TO 3 CAPSULES 3 TIMES DAILY.
     Route: 048
     Dates: start: 201703
  2. ESBRIET [Suspect]
     Active Substance: PIRFENIDONE
     Route: 048
  3. UBIDECARENONE [Concomitant]
     Active Substance: UBIDECARENONE
  4. TAMSULOSIN [Concomitant]
     Active Substance: TAMSULOSIN
  5. SPIRONOLACTONE [Concomitant]
     Active Substance: SPIRONOLACTONE
  6. METOPROLOL TARTRATE [Concomitant]
     Active Substance: METOPROLOL TARTRATE
  7. LEVOTHYROXINE [Concomitant]
     Active Substance: LEVOTHYROXINE
  8. FUROSEMIDE [Concomitant]
     Active Substance: FUROSEMIDE
  9. CLOTRIMAZOLE [Concomitant]
     Active Substance: CLOTRIMAZOLE
  10. AZELASTINE [Concomitant]
     Active Substance: AZELASTINE
  11. ATORVASTATIN [Concomitant]
     Active Substance: ATORVASTATIN
  12. ASPIRIN [Concomitant]
     Active Substance: ASPIRIN
  13. ALBUTEROL SULFATE [Concomitant]
     Active Substance: ALBUTEROL SULFATE

REACTIONS (2)
  - Decreased appetite [Unknown]
  - Weight decreased [Not Recovered/Not Resolved]
